FAERS Safety Report 7949631-2 (Version None)
Quarter: 2011Q4

REPORT INFORMATION
  Report Type: 
  Country: None (occurrence: None)
  Receive Date: 20111130
  Receipt Date: 20111121
  Transmission Date: 20120403
  Serious: Yes (Other)
  Sender: FDA-Public Use
  Company Number: US-PFIZER INC-2011290550

PATIENT

DRUGS (1)
  1. GABAPENTIN [Suspect]
     Route: 048

REACTIONS (1)
  - DRUG ABUSE [None]
